FAERS Safety Report 4928215-4 (Version None)
Quarter: 2006Q1

REPORT INFORMATION
  Report Type: 
  Country: None (occurrence: None)
  Receive Date: 20060223
  Receipt Date: 20060131
  Transmission Date: 20060701
  Serious: Yes (Hospitalization)
  Sender: FDA-Public Use
  Company Number: JP200511000115

PATIENT
  Age: 69 Year
  Sex: Female
  Weight: 50 kg

DRUGS (2)
  1. HUMALOG [Suspect]
     Indication: DIABETES MELLITUS
     Dosage: SUBCUTANEOUS
     Route: 058
     Dates: end: 20030407
  2. HUMACART NPH (HUMAN INSULIN (RDNA ORIGIN) NPH) CARTRIDGE [Suspect]
     Indication: DIABETES MELLITUS INSULIN-DEPENDENT
     Dosage: SUBCUTANEOUS
     Route: 058
     Dates: end: 20030407

REACTIONS (3)
  - ANTI-INSULIN ANTIBODY POSITIVE [None]
  - KETOACIDOSIS [None]
  - WHITE BLOOD CELL COUNT DECREASED [None]
